FAERS Safety Report 14920919 (Version 2)
Quarter: 2018Q2

REPORT INFORMATION
  Report Type: Spontaneous
  Country: US (occurrence: US)
  Receive Date: 20180521
  Receipt Date: 20180530
  Transmission Date: 20180711
  Serious: Yes (Hospitalization)
  Sender: FDA-Public Use
  Company Number: US-ACTELION-A-US2018-172255

PATIENT
  Age: 3 Year
  Sex: Female

DRUGS (4)
  1. REMODULIN [Concomitant]
     Active Substance: TREPROSTINIL
     Dosage: 11 NG/KG, PER MIN
     Dates: start: 201708
  2. TRACLEER [Suspect]
     Active Substance: BOSENTAN
     Indication: PULMONARY ARTERIAL HYPERTENSION
     Dosage: 31.25 MG, BID
     Route: 048
     Dates: start: 20171101
  3. SILDENAFIL. [Concomitant]
     Active Substance: SILDENAFIL
     Dosage: 12 MG, TID
  4. TRACLEER [Suspect]
     Active Substance: BOSENTAN
     Dosage: 31.25 MG, QD
     Route: 048
     Dates: start: 201708

REACTIONS (6)
  - Pseudocyst [Recovered/Resolved]
  - Cyst removal [Recovered/Resolved]
  - Device malfunction [Recovering/Resolving]
  - Surgical procedure repeated [Recovered/Resolved]
  - Infection [Recovered/Resolved]
  - Post procedural complication [Recovered/Resolved]

NARRATIVE: CASE EVENT DATE: 20180329
